FAERS Safety Report 8824950 (Version 2)
Quarter: 2012Q4

REPORT INFORMATION
  Report Type: 
  Country: US (occurrence: US)
  Receive Date: 20121004
  Receipt Date: 20121015
  Transmission Date: 20130627
  Serious: No
  Sender: FDA-Public Use
  Company Number: US-PFIZER INC-2012245047

PATIENT
  Age: 40 Year
  Sex: Female
  Weight: 62.59 kg

DRUGS (3)
  1. LYRICA [Suspect]
     Indication: FIBROMYALGIA
     Dosage: 75 mg, 2x/day
     Route: 048
     Dates: start: 2012
  2. OXYCODONE [Concomitant]
     Indication: MIGRAINE
     Dosage: 10 mg, 4x/day
  3. FLEXERIL [Concomitant]
     Indication: BACK DISORDER
     Dosage: UNK

REACTIONS (5)
  - Condition aggravated [Unknown]
  - Nervousness [Unknown]
  - Balance disorder [Unknown]
  - Anxiety [Unknown]
  - Dry mouth [Unknown]
